FAERS Safety Report 18258303 (Version 1)
Quarter: 2020Q3

REPORT INFORMATION
  Report Type: Report from Study
  Country: None (occurrence: US)
  Receive Date: 20200911
  Receipt Date: 20200911
  Transmission Date: 20201103
  Serious: No
  Sender: FDA-Public Use
  Company Number: US-BIOVITRUM-2020US1515

PATIENT
  Age: 55 Year
  Sex: Male

DRUGS (2)
  1. KINERET [Suspect]
     Active Substance: ANAKINRA
     Indication: STILL^S DISEASE
     Route: 058
     Dates: start: 20191220
  2. KINERET [Suspect]
     Active Substance: ANAKINRA
     Route: 058

REACTIONS (4)
  - Off label use [Not Recovered/Not Resolved]
  - Infection [Unknown]
  - Peripheral swelling [Unknown]
  - Product dose omission issue [Unknown]

NARRATIVE: CASE EVENT DATE: 20191219
